FAERS Safety Report 4804106-4 (Version None)
Quarter: 2005Q4

REPORT INFORMATION
  Report Type: 
  Country: None (occurrence: None)
  Receive Date: 20051018
  Receipt Date: 20051018
  Transmission Date: 20060501
  Serious: No
  Sender: FDA-Public Use
  Company Number: None

PATIENT
  Age: 57 Year
  Sex: Male
  Weight: 78 kg

DRUGS (9)
  1. AMANTADINE HCL [Suspect]
     Indication: MULTIPLE SCLEROSIS
     Dosage: 100 MG TWICE DAILY
     Dates: start: 20040915, end: 20050915
  2. RANITIDINE HCL [Concomitant]
  3. BUPROPION HCL [Concomitant]
  4. BACLOFEN [Concomitant]
  5. POTASSIUM CHLORIDE [Concomitant]
  6. HCTZ 25/TRIAMTERENE 37.5MG [Concomitant]
  7. INTERFERON BETA-1A [Concomitant]
  8. TERAZOSIN HCL [Concomitant]
  9. SENNOSIDES [Concomitant]

REACTIONS (4)
  - BLINDNESS [None]
  - CORNEAL DISORDER [None]
  - DRUG TOXICITY [None]
  - VISUAL DISTURBANCE [None]
